FAERS Safety Report 24324532 (Version 1)
Quarter: 2024Q3

REPORT INFORMATION
  Report Type: Spontaneous
  Country: US (occurrence: US)
  Receive Date: 20240916
  Receipt Date: 20240916
  Transmission Date: 20241016
  Serious: No
  Sender: JOHNSON AND JOHNSON
  Company Number: US-JNJFOC-20240909698

PATIENT
  Sex: Female

DRUGS (2)
  1. TYLENOL 8 HR ARTHRITIS PAIN [Suspect]
     Active Substance: ACETAMINOPHEN
     Indication: Pain
     Dosage: TOOK EIGHT OF THOSE BETWEEN 31-AUG-2024 AND 01-SEP-2024 (USED 8 TABLETS IN A 24 HOUR PERIOD)
     Route: 048
     Dates: start: 20240831, end: 20240901
  2. TYLENOL EXTRA STRENGTH [Concomitant]
     Active Substance: ACETAMINOPHEN
     Indication: Pain
     Route: 065

REACTIONS (4)
  - Burning sensation [Unknown]
  - Feeling abnormal [Unknown]
  - Pain in extremity [Not Recovered/Not Resolved]
  - Overdose [Unknown]

NARRATIVE: CASE EVENT DATE: 20240101
